FAERS Safety Report 4506209-0 (Version None)
Quarter: 2004Q4

REPORT INFORMATION
  Report Type: 
  Country: None (occurrence: None)
  Receive Date: 20041119
  Receipt Date: 20030605
  Transmission Date: 20050328
  Serious: Yes (Hospitalization, Disabling, Other)
  Sender: FDA-Public Use
  Company Number: US-MERCK-0306USA00836

PATIENT
  Age: 59 Year
  Sex: Male
  Weight: 78 kg

DRUGS (20)
  1. VIOXX [Suspect]
     Indication: ARTHRALGIA
     Route: 048
     Dates: start: 20000629, end: 20011103
  2. CARAFATE [Concomitant]
     Route: 048
  3. ATENOLOL [Concomitant]
     Route: 048
  4. REGLAN [Concomitant]
     Route: 048
  5. THEO-DUR [Concomitant]
     Route: 048
  6. ALDACTONE [Concomitant]
     Route: 048
  7. PHENERGAN TABLETS/SUPPOSITORIES [Concomitant]
     Indication: NAUSEA
     Route: 048
  8. FLOVENT [Concomitant]
     Route: 055
  9. COMBIVENT [Concomitant]
     Route: 055
  10. ELAVIL [Concomitant]
     Route: 048
  11. NITROSTAT [Concomitant]
     Route: 060
  12. BUSPAR [Concomitant]
     Route: 048
  13. METHADONE HYDROCHLORIDE [Concomitant]
     Route: 048
  14. SEREVENT DISKHALER [Concomitant]
     Route: 055
  15. FLONASE [Concomitant]
     Route: 055
     Dates: start: 20000629
  16. ZANTAC [Concomitant]
     Route: 065
  17. IRON (UNSPECIFIED) [Concomitant]
     Route: 048
  18. FOSFREE [Concomitant]
     Route: 065
  19. ULTRAM [Concomitant]
     Indication: PAIN
     Route: 048
  20. VIOXX [Suspect]
     Indication: OSTEOARTHRITIS
     Route: 048
     Dates: start: 20000629, end: 20011103

REACTIONS (27)
  - ABDOMINAL PAIN UPPER [None]
  - ADVERSE EVENT [None]
  - ANASTOMOTIC STENOSIS [None]
  - ANASTOMOTIC ULCER [None]
  - BILIARY DILATATION [None]
  - BLOOD PRESSURE INCREASED [None]
  - BURSITIS [None]
  - CANDIDIASIS [None]
  - CAROTID ARTERY STENOSIS [None]
  - CARPAL TUNNEL SYNDROME [None]
  - COLONIC POLYP [None]
  - CORONARY ARTERY DISEASE [None]
  - DYSPHAGIA [None]
  - HEADACHE [None]
  - HYPERLIPIDAEMIA [None]
  - IMPAIRED GASTRIC EMPTYING [None]
  - MYOCARDIAL ISCHAEMIA [None]
  - OEDEMA [None]
  - ORTHOSTATIC HYPOTENSION [None]
  - OSTEOARTHRITIS [None]
  - PAIN [None]
  - PEPTIC ULCER HAEMORRHAGE [None]
  - PROTHROMBIN LEVEL INCREASED [None]
  - SYNCOPE [None]
  - TENOSYNOVITIS [None]
  - UPPER RESPIRATORY TRACT INFECTION [None]
  - VESTIBULAR NEURONITIS [None]
